FAERS Safety Report 4408226-8 (Version None)
Quarter: 2004Q3

REPORT INFORMATION
  Report Type: 
  Country: None (occurrence: None)
  Receive Date: 20040726
  Receipt Date: 20040726
  Transmission Date: 20050211
  Serious: Yes (Death)
  Sender: FDA-Public Use
  Company Number: None

PATIENT
  Age: 56 Year
  Sex: Male
  Weight: 79.3795 kg

DRUGS (1)
  1. LISINOPRIL [Suspect]
     Indication: HYPERTENSION
     Dosage: 20 MG   DAILY    ORAL
     Route: 048
     Dates: start: 19980601, end: 20040625

REACTIONS (6)
  - DYSPHAGIA [None]
  - FEELING ABNORMAL [None]
  - INSOMNIA [None]
  - SENSATION OF FOREIGN BODY [None]
  - SWOLLEN TONGUE [None]
  - VOMITING [None]
